FAERS Safety Report 6095529-7 (Version None)
Quarter: 2009Q1

REPORT INFORMATION
  Report Type: 
  Country: None (occurrence: None)
  Receive Date: 20090227
  Receipt Date: 20080421
  Transmission Date: 20090719
  Serious: No
  Sender: FDA-Public Use
  Company Number: A0723884A

PATIENT
  Age: 56 Year
  Sex: Female

DRUGS (7)
  1. LAMICTAL [Suspect]
     Indication: BIPOLAR DISORDER
     Dosage: 25MG THREE TIMES PER DAY
     Route: 048
     Dates: start: 20080301
  2. FLUTICASONE PROPIONATE [Concomitant]
  3. NEXIUM [Concomitant]
  4. EVISTA [Concomitant]
  5. ALLEGRA [Concomitant]
  6. TRAZODONE HCL [Concomitant]
  7. VITAMINS [Concomitant]

REACTIONS (4)
  - DEPRESSION [None]
  - DISORIENTATION [None]
  - DISTURBANCE IN ATTENTION [None]
  - FATIGUE [None]
